FAERS Safety Report 6959122-3 (Version None)
Quarter: 2010Q3

REPORT INFORMATION
  Report Type: 
  Country: None (occurrence: None)
  Receive Date: 20100831
  Receipt Date: 20100825
  Transmission Date: 20110219
  Serious: Yes (Death)
  Sender: FDA-Public Use
  Company Number: US-ALLERGAN-1011013US

PATIENT
  Age: 29 Year
  Sex: Female

DRUGS (3)
  1. BOTOX [Suspect]
     Indication: MUSCLE SPASTICITY
     Dosage: 200 UNITS, SINGLE
     Dates: start: 20100412, end: 20100412
  2. BOTOX [Suspect]
     Dosage: 100 UNITS, SINGLE
     Dates: start: 20100412, end: 20100412
  3. BOTOX [Suspect]
     Dosage: 100 UNITS, SINGLE
     Dates: start: 20100412, end: 20100412

REACTIONS (1)
  - DEATH [None]
